FAERS Safety Report 23135151 (Version 1)
Quarter: 2023Q4

REPORT INFORMATION
  Report Type: Spontaneous
  Country: US (occurrence: None)
  Receive Date: 20231101
  Receipt Date: 20231101
  Transmission Date: 20240110
  Serious: Yes (Other)
  Sender: FDA-Public Use
  Company Number: 2023A247844

PATIENT
  Age: 87 Year
  Sex: Male

DRUGS (1)
  1. FASENRA [Suspect]
     Active Substance: BENRALIZUMAB
     Route: 058
     Dates: end: 202208

REACTIONS (7)
  - Neoplasm malignant [Unknown]
  - Pulmonary function test decreased [Unknown]
  - COVID-19 [Unknown]
  - Malaise [Unknown]
  - Drug ineffective [Unknown]
  - Insurance issue [Unknown]
  - Inability to afford medication [Unknown]
